FAERS Safety Report 5409567-8 (Version None)
Quarter: 2007Q3

REPORT INFORMATION
  Report Type: 
  Country: None (occurrence: None)
  Receive Date: 20070809
  Receipt Date: 20070808
  Transmission Date: 20080115
  Serious: Yes (Other)
  Sender: FDA-Public Use
  Company Number: CH-BRISTOL-MYERS SQUIBB COMPANY-13589619

PATIENT
  Sex: Female

DRUGS (5)
  1. REYATAZ [Suspect]
     Indication: HIV INFECTION
     Dates: start: 20060918, end: 20061002
  2. ZIAGEN [Suspect]
  3. NORVIR [Concomitant]
  4. AZT [Concomitant]
  5. METHADONE HCL [Concomitant]

REACTIONS (4)
  - HYPERSENSITIVITY [None]
  - NORMAL NEWBORN [None]
  - PREGNANCY [None]
  - VOMITING [None]
